FAERS Safety Report 18009410 (Version 1)
Quarter: 2020Q3

REPORT INFORMATION
  Report Type: Other
  Country: VN (occurrence: VN)
  Receive Date: 20200710
  Receipt Date: 20200710
  Transmission Date: 20201103
  Serious: Yes (Hospitalization, Other)
  Sender: FDA-Public Use
  Company Number: VN-NEOPHARMA INC-000342

PATIENT
  Age: 2 Year
  Sex: Male
  Weight: 10.6 kg

DRUGS (2)
  1. AMOXICILLIN SODIUM [Suspect]
     Active Substance: AMOXICILLIN SODIUM
     Indication: PNEUMONIA
     Dosage: 100 MG/KG/D IV TWICE PER DAY.
     Route: 042
  2. SULBACTAM SODIUM [Suspect]
     Active Substance: SULBACTAM SODIUM
     Indication: PNEUMONIA
     Dosage: 50 MG/KG/D IV TWICE PER DAY.
     Route: 042

REACTIONS (2)
  - Hypothermia [Recovered/Resolved]
  - Drug interaction [Unknown]
